FAERS Safety Report 4567562-5 (Version None)
Quarter: 2005Q1

REPORT INFORMATION
  Report Type: 
  Country: None (occurrence: None)
  Receive Date: 20050127
  Receipt Date: 20050120
  Transmission Date: 20050727
  Serious: Yes (Hospitalization)
  Sender: FDA-Public Use
  Company Number: 211901

PATIENT
  Age: 51 Year
  Sex: Female

DRUGS (2)
  1. RAPTIVA [Suspect]
     Indication: PSORIASIS
     Dosage: 0.5 ML, SINGLE, SUBCUTANEOUS; SEE IMAGE
     Route: 058
     Dates: start: 20041115, end: 20041115
  2. RAPTIVA [Suspect]
     Indication: PSORIASIS
     Dosage: 0.5 ML, SINGLE, SUBCUTANEOUS; SEE IMAGE
     Route: 058
     Dates: start: 20041122, end: 20041213

REACTIONS (8)
  - BLOOD ALKALINE PHOSPHATASE INCREASED [None]
  - CERVIX CARCINOMA [None]
  - EOSINOPHILIA [None]
  - GAMMA-GLUTAMYLTRANSFERASE INCREASED [None]
  - LEUKOCYTOSIS [None]
  - SQUAMOUS CELL CARCINOMA [None]
  - TRANSAMINASES INCREASED [None]
  - TREATMENT NONCOMPLIANCE [None]
